FAERS Safety Report 25725011 (Version 2)
Quarter: 2025Q3

REPORT INFORMATION
  Report Type: Spontaneous
  Country: US (occurrence: US)
  Receive Date: 20250826
  Receipt Date: 20250918
  Transmission Date: 20251020
  Serious: Yes (Death)
  Sender: AMNEAL
  Company Number: US-AMNEAL PHARMACEUTICALS-2025-AMRX-02748

PATIENT
  Sex: Male

DRUGS (1)
  1. CREXONT [Suspect]
     Active Substance: CARBIDOPA\LEVODOPA
     Indication: Parkinson^s disease
     Dosage: 6 CAPSULES (52.5/210MG), DAILY (QUANTITY180/30 DAYS)
     Route: 048

REACTIONS (2)
  - Death [Fatal]
  - Aphasia [Unknown]
